FAERS Safety Report 6790186-6 (Version None)
Quarter: 2010Q2

REPORT INFORMATION
  Report Type: 
  Country: None (occurrence: None)
  Receive Date: 20100520
  Receipt Date: 20100301
  Transmission Date: 20101027
  Serious: Yes (Other)
  Sender: FDA-Public Use
  Company Number: 2006150866

PATIENT
  Age: 60 Year
  Sex: Female
  Weight: 79 kg

DRUGS (8)
  1. PROVERA [Suspect]
     Indication: HORMONE REPLACEMENT THERAPY
     Dosage: 2.5 ORAL
     Route: 048
     Dates: start: 19890801, end: 19981101
  2. MEDROXYPROGESTERONE ACETATE [Suspect]
     Indication: HORMONE REPLACEMENT THERAPY
     Dosage: 2.5, ORAL, 2.5
     Route: 048
     Dates: start: 19941201, end: 19950101
  3. MEDROXYPROGESTERONE ACETATE [Suspect]
     Indication: HORMONE REPLACEMENT THERAPY
     Dosage: 2.5, ORAL, 2.5
     Route: 048
     Dates: start: 19940701, end: 19980801
  4. MEDROXYPROGESTERONE [Suspect]
     Indication: HORMONE REPLACEMENT THERAPY
     Dosage: 2.5
     Dates: start: 19940701, end: 19980801
  5. PREMPRO [Suspect]
     Indication: HORMONE REPLACEMENT THERAPY
     Dosage: 0.625/2.5, 0.625/5
     Dates: start: 19981101, end: 20020201
  6. PREMPRO [Suspect]
     Indication: HORMONE REPLACEMENT THERAPY
     Dosage: 0.625/2.5, 0.625/5
     Dates: start: 20020201, end: 20020801
  7. PREMARIN [Suspect]
     Indication: HORMONE REPLACEMENT THERAPY
     Dosage: 0.625
     Dates: start: 19920201, end: 19981101
  8. CYCRIN [Suspect]
     Indication: HORMONE REPLACEMENT THERAPY
     Dosage: 2.5
     Dates: start: 19961001, end: 19961201

REACTIONS (1)
  - BREAST CANCER FEMALE [None]
